FAERS Safety Report 5688225-9 (Version None)
Quarter: 2008Q1

REPORT INFORMATION
  Report Type: 
  Country: None (occurrence: None)
  Receive Date: 20080327
  Receipt Date: 20080317
  Transmission Date: 20080703
  Serious: Yes (Hospitalization)
  Sender: FDA-Public Use
  Company Number: TCI2008A01046

PATIENT
  Age: 82 Year
  Sex: Female

DRUGS (6)
  1. ACTOS [Suspect]
     Indication: TYPE 2 DIABETES MELLITUS
     Dosage: 30 MG (30 MG,1 IN 1 D)
     Route: 048
     Dates: start: 20060301, end: 20080202
  2. NOVORAPID 30MIX       (INSULIN ASPART) [Concomitant]
  3. NORVASC [Concomitant]
  4. PANALDINE          (TICLOPIDINE HYDROCHLORIDE) [Concomitant]
  5. PRAVASTATIN [Concomitant]
  6. GLYCORAN        (METFORMIN HYDROCHLORIDE) [Concomitant]

REACTIONS (8)
  - CARDIAC FAILURE [None]
  - CARDIOMEGALY [None]
  - CEREBRAL INFARCTION [None]
  - FLUID RETENTION [None]
  - HEMIPARESIS [None]
  - NO THERAPEUTIC RESPONSE [None]
  - PLEURAL EFFUSION [None]
  - PULMONARY CONGESTION [None]
